FAERS Safety Report 4539596-8 (Version None)
Quarter: 2004Q4

REPORT INFORMATION
  Report Type: 
  Country: None (occurrence: None)
  Receive Date: 20041228
  Receipt Date: 20041216
  Transmission Date: 20050328
  Serious: Yes (Other)
  Sender: FDA-Public Use
  Company Number: PHNU2004DE04227

PATIENT
  Sex: Female

DRUGS (2)
  1. SANASTHMAX [Suspect]
     Indication: ASTHMA
  2. FORADIL [Suspect]
     Indication: ASTHMA

REACTIONS (6)
  - DRUG EXPOSURE DURING PREGNANCY [None]
  - INTRA-UTERINE DEATH [None]
  - PLACENTAL DISORDER [None]
  - PLACENTAL DYSPLASIA [None]
  - PLACENTAL INSUFFICIENCY [None]
  - PREGNANCY [None]
